FAERS Safety Report 15160312 (Version 1)
Quarter: 2018Q3

REPORT INFORMATION
  Report Type: Spontaneous
  Country: US (occurrence: US)
  Receive Date: 20180718
  Receipt Date: 20180718
  Transmission Date: 20181010
  Serious: No
  Sender: FDA-Public Use
  Company Number: US-STRIDES ARCOLAB LIMITED-2017SP013710

PATIENT

DRUGS (7)
  1. TEMOZOLOMIDE. [Concomitant]
     Active Substance: TEMOZOLOMIDE
     Indication: METASTASES TO LUNG
     Dosage: UNK, 2 CYCLICAL
     Route: 065
  2. METHYLPREDNISOLONE. [Concomitant]
     Active Substance: METHYLPREDNISOLONE
     Indication: AUTOIMMUNE HEPATITIS
     Dosage: UNK
     Route: 065
  3. GABAPENTIN. [Concomitant]
     Active Substance: GABAPENTIN
     Indication: PARAESTHESIA
     Dosage: 300 MG, TID
     Route: 065
  4. IPILIMUMAB [Concomitant]
     Active Substance: IPILIMUMAB
     Dosage: UNK
     Route: 065
  5. MYCOPHENOLATE MOFETIL. [Suspect]
     Active Substance: MYCOPHENOLATE MOFETIL
     Indication: AUTOIMMUNE HEPATITIS
     Dosage: UNK
     Route: 065
  6. INTERLEUKIN?2 [Concomitant]
     Active Substance: ALDESLEUKIN
     Indication: METASTASES TO LUNG
     Dosage: UNK, 2 CYCLICAL
     Route: 065
  7. IPILIMUMAB [Concomitant]
     Active Substance: IPILIMUMAB
     Indication: METASTASES TO LUNG
     Dosage: EVERY 3 WEEKS FOR A TOTAL OF 4 DOSES, UNK
     Route: 065

REACTIONS (1)
  - Off label use [Unknown]
